FAERS Safety Report 13633378 (Version 1)
Quarter: 2017Q2

REPORT INFORMATION
  Report Type: Spontaneous
  Country: US (occurrence: US)
  Receive Date: 20170531
  Receipt Date: 20170531
  Transmission Date: 20170830
  Serious: No
  Sender: FDA-Public Use
  Company Number: US-ASTELLAS-1539273

PATIENT
  Age: 74 Year
  Sex: Male
  Weight: 67.19 kg

DRUGS (12)
  1. GEMCITABINE [Concomitant]
     Active Substance: GEMCITABINE\GEMCITABINE HYDROCHLORIDE
     Dosage: MAINTENANCE DOSE FORM 09/OCT/2014. ON 23/OCT/2014, 4TH CYCLE WAS INITIATED (7TH OVERALL).
     Route: 065
     Dates: start: 20140821
  2. TARCEVA [Suspect]
     Active Substance: ERLOTINIB HYDROCHLORIDE
     Indication: LUNG NEOPLASM MALIGNANT
     Route: 048
     Dates: start: 20150120, end: 20151005
  3. DULOXETINE. [Concomitant]
     Active Substance: DULOXETINE
     Route: 065
  4. IRBESARTAN. [Concomitant]
     Active Substance: IRBESARTAN
     Route: 065
  5. LEVOTHYROXINE. [Concomitant]
     Active Substance: LEVOTHYROXINE
     Route: 065
  6. DOXYCYCLINE HYCLATE. [Concomitant]
     Active Substance: DOXYCYCLINE HYCLATE
     Route: 065
  7. HYDROCORTISONE. [Concomitant]
     Active Substance: HYDROCORTISONE
     Route: 061
  8. CETAPHIL CREAM [Concomitant]
     Route: 065
  9. DOXYCYCLINE. [Concomitant]
     Active Substance: DOXYCYCLINE
     Route: 065
  10. RIVAROXABAN [Concomitant]
     Active Substance: RIVAROXABAN
     Route: 065
  11. TARCEVA [Suspect]
     Active Substance: ERLOTINIB HYDROCHLORIDE
     Route: 048
  12. FERROUS SULFATE. [Concomitant]
     Active Substance: FERROUS SULFATE
     Route: 065

REACTIONS (19)
  - Rash [Unknown]
  - Asthenia [Unknown]
  - Blister [Unknown]
  - Productive cough [Unknown]
  - Hypotension [Unknown]
  - Purulent discharge [Unknown]
  - Diarrhoea [Unknown]
  - Pyrexia [Unknown]
  - Dermatitis acneiform [Recovered/Resolved]
  - Nail disorder [Unknown]
  - Dizziness [Unknown]
  - Stomatitis [Recovering/Resolving]
  - Fatigue [Unknown]
  - Cheilitis [Unknown]
  - Conjunctivitis [Recovering/Resolving]
  - Skin exfoliation [Unknown]
  - Hair texture abnormal [Unknown]
  - Hair growth abnormal [Unknown]
  - Tinnitus [Unknown]

NARRATIVE: CASE EVENT DATE: 20151015
